FAERS Safety Report 8594241-X (Version None)
Quarter: 2012Q3

REPORT INFORMATION
  Report Type: 
  Country: None (occurrence: None)
  Receive Date: 20120814
  Receipt Date: 20120807
  Transmission Date: 20120928
  Serious: Yes (Hospitalization)
  Sender: FDA-Public Use
  Company Number: JP-ABBOTT-12P-087-0933878-00

PATIENT
  Sex: Female

DRUGS (6)
  1. VOLTAREN [Suspect]
     Indication: ANKYLOSING SPONDYLITIS
     Route: 048
     Dates: end: 20120201
  2. BUPRENORPHINE [Concomitant]
     Indication: ANALGESIC THERAPY
     Route: 054
  3. BUPRENORPHINE HCL [Concomitant]
     Indication: ANKYLOSING SPONDYLITIS
     Dosage: 0.2 MG DAILY
     Route: 054
  4. HUMIRA [Suspect]
     Indication: ANKYLOSING SPONDYLITIS
     Route: 058
     Dates: start: 20111208, end: 20120229
  5. SULFASALAZINE [Concomitant]
     Indication: ANKYLOSING SPONDYLITIS
     Route: 048
  6. HUMIRA [Suspect]
     Dates: start: 20120523

REACTIONS (1)
  - GASTRIC ULCER PERFORATION [None]
